FAERS Safety Report 23938592 (Version 1)
Quarter: 2024Q2

REPORT INFORMATION
  Report Type: Spontaneous
  Country: HR (occurrence: None)
  Receive Date: 20240604
  Receipt Date: 20240604
  Transmission Date: 20240716
  Serious: Yes (Other)
  Sender: FDA-Public Use
  Company Number: 2024A129322

PATIENT
  Age: 32 Year
  Sex: Female
  Weight: 60 kg

DRUGS (2)
  1. QUETIAPINE [Suspect]
     Active Substance: QUETIAPINE
     Dosage: SEROQUEL 20 TBL OD 400 MG
     Dates: start: 20240406, end: 20240406
  2. CLONAZEPAM [Suspect]
     Active Substance: CLONAZEPAM
     Dosage: RIVOTRIL 45 TABLET OD 0.5 MG
     Dates: start: 20240406, end: 20240406

REACTIONS (4)
  - Suicide attempt [Unknown]
  - Hypotension [Unknown]
  - Intentional overdose [Unknown]
  - Somnolence [Unknown]

NARRATIVE: CASE EVENT DATE: 20240406
